FAERS Safety Report 6106670-4 (Version None)
Quarter: 2009Q1

REPORT INFORMATION
  Report Type: 
  Country: None (occurrence: None)
  Receive Date: 20090304
  Receipt Date: 20090217
  Transmission Date: 20090719
  Serious: Yes (Death, Other)
  Sender: FDA-Public Use
  Company Number: US025434

PATIENT
  Age: 46 Year
  Sex: Male

DRUGS (13)
  1. TRISENOX [Suspect]
     Indication: ACUTE PROMYELOCYTIC LEUKAEMIA
     Dosage: 11 MG QD, INTRAVENOUS DRIP
     Route: 041
     Dates: start: 20090107, end: 20090116
  2. TRISENOX [Suspect]
     Indication: ACUTE PROMYELOCYTIC LEUKAEMIA
     Dosage: 10 MG QD, INTRAVENOUS DRIP
     Route: 041
     Dates: start: 20090124, end: 20090127
  3. AMPHOTERICIN B [Suspect]
     Dosage: 150 MG QD; INTRAVENOUS
     Route: 042
     Dates: start: 20090110, end: 20090114
  4. AMPHOTERICIN B [Suspect]
     Dosage: 150 MG QD, INTRAVENOUS
     Route: 042
     Dates: start: 20090124, end: 20090127
  5. IDARUBICIN HYDROCHLORIDE [Concomitant]
  6. ITRACONAZOLE [Concomitant]
  7. POTASSIUM CHLORIDE [Concomitant]
  8. SULFAMETHOXAZOLE AND TRIMETHOPRIM [Concomitant]
  9. SENNOSIDE [Concomitant]
  10. LOXOPROFEN SODIUM [Concomitant]
  11. POLYMYXIN B SULFATE [Concomitant]
  12. LORNOXICAM [Concomitant]
  13. THROMBOMODULIN ALPHA (GENETICAL RECOMMENTATION) [Concomitant]

REACTIONS (10)
  - ACUTE PROMYELOCYTIC LEUKAEMIA DIFFERENTIATION SYNDROME [None]
  - ELECTROCARDIOGRAM QT PROLONGED [None]
  - FEBRILE NEUTROPENIA [None]
  - LEUKOCYTOSIS [None]
  - NEUTROPHIL COUNT DECREASED [None]
  - PLEURAL EFFUSION [None]
  - RENAL IMPAIRMENT [None]
  - RESPIRATORY DISORDER [None]
  - SEPTIC SHOCK [None]
  - WEIGHT INCREASED [None]
